FAERS Safety Report 8558439-9 (Version None)
Quarter: 2012Q3

REPORT INFORMATION
  Report Type: 
  Country: None (occurrence: None)
  Receive Date: 20120801
  Receipt Date: 20120730
  Transmission Date: 20120928
  Serious: Yes (Death, Hospitalization)
  Sender: FDA-Public Use
  Company Number: PHHY2012GB065747

PATIENT
  Age: 19 Year
  Sex: Male

DRUGS (2)
  1. DICLOFENAC SODIUM [Suspect]
     Dosage: 50 MG, 14 DF (14 ? 50MG DICLOFENAC TABLETS)
     Route: 048
  2. NEFOPAM [Suspect]
     Dosage: 30 MG, 60 DF (60 ? 30MG TABLETS)
     Route: 048

REACTIONS (6)
  - INTENTIONAL OVERDOSE [None]
  - CONVULSION [None]
  - GENERAL PHYSICAL HEALTH DETERIORATION [None]
  - CYANOSIS [None]
  - UNRESPONSIVE TO STIMULI [None]
  - CARDIO-RESPIRATORY ARREST [None]
